FAERS Safety Report 7267681-9 (Version None)
Quarter: 2011Q1

REPORT INFORMATION
  Report Type: 
  Country: None (occurrence: None)
  Receive Date: 20110201
  Receipt Date: 20110125
  Transmission Date: 20110831
  Serious: Yes (Hospitalization)
  Sender: FDA-Public Use
  Company Number: US-ROCHE-745671

PATIENT
  Sex: Female
  Weight: 58.5 kg

DRUGS (2)
  1. CALCIUM [Concomitant]
  2. BONIVA [Suspect]
     Indication: OSTEOPOROSIS
     Dosage: OTHER INDICATION: OSTEOARTHRITIS
     Route: 048
     Dates: start: 20060101

REACTIONS (3)
  - SURGERY [None]
  - FALL [None]
  - BACK PAIN [None]
